FAERS Safety Report 6615776-2 (Version None)
Quarter: 2010Q1

REPORT INFORMATION
  Report Type: 
  Country: None (occurrence: None)
  Receive Date: 20100305
  Receipt Date: 20100115
  Transmission Date: 20100710
  Serious: Yes (Hospitalization, Other)
  Sender: FDA-Public Use
  Company Number: US-JNJFOC-20091202200

PATIENT
  Age: 84 Year
  Sex: Female

DRUGS (2)
  1. LEVAQUIN [Suspect]
     Indication: URINARY TRACT INFECTION
     Route: 065
  2. ^BLOOD PRESSURE^ MEDICATION [Concomitant]
     Route: 065

REACTIONS (2)
  - ABASIA [None]
  - DELIRIUM [None]
